FAERS Safety Report 23675309 (Version 1)
Quarter: 2024Q1

REPORT INFORMATION
  Report Type: Spontaneous
  Country: CN (occurrence: CN)
  Receive Date: 20240327
  Receipt Date: 20240327
  Transmission Date: 20240410
  Serious: Yes (Life-Threatening)
  Sender: FDA-Public Use
  Company Number: CN-BEH-2024170141

PATIENT
  Age: 71 Year
  Sex: Male
  Weight: 61 kg

DRUGS (3)
  1. ALBURX [Suspect]
     Active Substance: ALBUMIN HUMAN
     Indication: Pulmonary tuberculosis
     Dosage: 10 GRAM, OD
     Route: 041
     Dates: start: 20240311, end: 20240315
  2. ALBURX [Suspect]
     Active Substance: ALBUMIN HUMAN
     Indication: Hypoproteinaemia
  3. ALBURX [Suspect]
     Active Substance: ALBUMIN HUMAN
     Indication: Malnutrition

REACTIONS (12)
  - Hypersensitivity [Recovering/Resolving]
  - Chills [Recovering/Resolving]
  - Chest discomfort [Recovering/Resolving]
  - Tachypnoea [Recovering/Resolving]
  - Cyanosis [Recovering/Resolving]
  - Pyrexia [Recovering/Resolving]
  - Heart rate increased [Recovering/Resolving]
  - Respiratory rate increased [Recovering/Resolving]
  - Hypoxia [Recovering/Resolving]
  - Acidosis [Recovering/Resolving]
  - Oxygen saturation decreased [Recovering/Resolving]
  - Breath sounds abnormal [Recovering/Resolving]

NARRATIVE: CASE EVENT DATE: 20240315
